FAERS Safety Report 20714914 (Version 1)
Quarter: 2022Q2

REPORT INFORMATION
  Report Type: Spontaneous
  Country: US (occurrence: None)
  Receive Date: 20220415
  Receipt Date: 20220415
  Transmission Date: 20220721
  Serious: Yes (Hospitalization)
  Sender: FDA-Public Use
  Company Number: None

PATIENT
  Sex: Male

DRUGS (7)
  1. ENBREL [Suspect]
     Active Substance: ETANERCEPT
     Indication: Psoriasis
     Dosage: FREQUENCY : WEEKLY;?
     Route: 058
     Dates: start: 20190726
  2. CIPROFLOXACN TAB 500MG [Concomitant]
  3. INDOMETHACIN CAP 75MG ER [Concomitant]
  4. KETOROLAC TAB 10MG [Concomitant]
  5. LEXAPRO TAB 10MG [Concomitant]
  6. LISINOPRIL [Concomitant]
     Active Substance: LISINOPRIL
  7. TRAZODONE TAB 50MG [Concomitant]

REACTIONS (5)
  - Condition aggravated [None]
  - Pain [None]
  - Headache [None]
  - Infection [None]
  - Therapy interrupted [None]
